FAERS Safety Report 16349864 (Version 1)
Quarter: 2019Q2

REPORT INFORMATION
  Report Type: Report from Study
  Country: US (occurrence: US)
  Receive Date: 20190523
  Receipt Date: 20190523
  Transmission Date: 20190711
  Serious: No
  Sender: FDA-Public Use
  Company Number: PHEH2019US021670

PATIENT
  Sex: Female

DRUGS (1)
  1. GLATOPA [Suspect]
     Active Substance: GLATIRAMER ACETATE
     Indication: MULTIPLE SCLEROSIS
     Dosage: UNK UNK, QD
     Route: 065

REACTIONS (5)
  - Injection site erythema [Unknown]
  - Injection site swelling [Unknown]
  - Malaise [Unknown]
  - Injection site pain [Unknown]
  - Pain in jaw [Unknown]
